FAERS Safety Report 15200909 (Version 2)
Quarter: 2018Q3

REPORT INFORMATION
  Report Type: Report from Study
  Country: US (occurrence: US)
  Receive Date: 20180726
  Receipt Date: 20180802
  Transmission Date: 20181010
  Serious: Yes (Hospitalization)
  Sender: FDA-Public Use
  Company Number: US-AMGEN-USASP2018085782

PATIENT
  Age: 72 Year
  Sex: Female
  Weight: 62.59 kg

DRUGS (14)
  1. NEURONTIN [Concomitant]
     Active Substance: GABAPENTIN
     Dosage: 100 MG, UNK
  2. LORAZEPAM. [Concomitant]
     Active Substance: LORAZEPAM
     Indication: ANXIETY
     Dosage: 1 MG, 1/2?1 TABLET QD
     Route: 048
  3. ESTROGEN [Concomitant]
     Active Substance: ESTROGENS
  4. PROLIA [Suspect]
     Active Substance: DENOSUMAB
     Indication: PRODUCT USED FOR UNKNOWN INDICATION
     Dosage: UNK
     Route: 065
     Dates: start: 201803
  5. TOPIRAMATE. [Concomitant]
     Active Substance: TOPIRAMATE
     Dosage: 25 MG, BID
     Route: 048
  6. CHELATED MAGNESIUM [Concomitant]
     Dosage: 100 MG, UNK
  7. ARNICA MONTANA. [Concomitant]
     Active Substance: HOMEOPATHICS
     Dosage: UNK
  8. VIACTIV CALCIUM PLUS VITAMIN D + K [Concomitant]
     Dosage: 1500 MG, QD
     Route: 048
  9. CELEXA [Concomitant]
     Active Substance: CITALOPRAM HYDROBROMIDE
     Dosage: 20 MG, QD
     Route: 048
  10. SYNTHROID [Concomitant]
     Active Substance: LEVOTHYROXINE SODIUM
     Dosage: 75 MUG, QD
     Route: 048
  11. MEDROL [Concomitant]
     Active Substance: METHYLPREDNISOLONE
     Dosage: 4 MG AS DIRECTED
  12. CYCLOBENZAPRINE HCL [Concomitant]
     Active Substance: CYCLOBENZAPRINE HYDROCHLORIDE
     Indication: MUSCLE SPASMS
     Dosage: 10 MG, Q8H AS NECESSARY
  13. MAGNESIUM CITRATE. [Concomitant]
     Active Substance: MAGNESIUM CITRATE
     Dosage: 8.725 G, AS NECESSARY
     Route: 048
  14. TRAMADOL HCL [Concomitant]
     Active Substance: TRAMADOL HYDROCHLORIDE
     Dosage: UNK

REACTIONS (20)
  - Cystitis [Unknown]
  - Back pain [Unknown]
  - Pain [Unknown]
  - Ligament sprain [Unknown]
  - Fatigue [Unknown]
  - Urinary tract infection [Unknown]
  - Musculoskeletal pain [Unknown]
  - Arthralgia [Unknown]
  - Bone pain [Unknown]
  - Blood pressure increased [Unknown]
  - Asthma [Unknown]
  - Myalgia [Unknown]
  - Constipation [Unknown]
  - Joint range of motion decreased [Unknown]
  - Malaise [Unknown]
  - Flatulence [Not Recovered/Not Resolved]
  - Cervical radiculopathy [Unknown]
  - Bursitis [Unknown]
  - Complex regional pain syndrome [Unknown]
  - Adverse drug reaction [Unknown]

NARRATIVE: CASE EVENT DATE: 2018
